FAERS Safety Report 4289050-6 (Version None)
Quarter: 2004Q1

REPORT INFORMATION
  Report Type: 
  Country: None (occurrence: None)
  Receive Date: 20040209
  Receipt Date: 20021218
  Transmission Date: 20041129
  Serious: Yes (Death, Hospitalization)
  Sender: FDA-Public Use
  Company Number: WAES 0212USA01889

PATIENT
  Age: 56 Year
  Sex: Male

DRUGS (4)
  1. ADVAIR DISKUS 100/50 [Concomitant]
  2. TUSSIONEX [Concomitant]
  3. SINGULAIR [Suspect]
     Indication: ASTHMA
     Route: 048
     Dates: start: 20010101, end: 20020305
  4. AVELOX [Concomitant]

REACTIONS (1)
  - ALLERGIC GRANULOMATOUS ANGIITIS [None]
